FAERS Safety Report 12706010 (Version 1)
Quarter: 2016Q3

REPORT INFORMATION
  Report Type: Spontaneous
  Country: IT (occurrence: IT)
  Receive Date: 20160901
  Receipt Date: 20160901
  Transmission Date: 20161109
  Serious: Yes (Life-Threatening)
  Sender: FDA-Public Use
  Company Number: IT-ACCORD-043526

PATIENT
  Age: 40 Year
  Sex: Female
  Weight: 90 kg

DRUGS (6)
  1. SELEPARINA [Concomitant]
     Active Substance: NADROPARIN CALCIUM
     Indication: THROMBOSIS PROPHYLAXIS
     Dosage: 3.800 UI ANTIXA/0.4 ML
     Route: 058
  2. RANITIDINE. [Concomitant]
     Active Substance: RANITIDINE
     Route: 048
  3. HOLOXAN BAXTER S.P.A [Interacting]
     Active Substance: IFOSFAMIDE
     Indication: SQUAMOUS CELL CARCINOMA OF THE CERVIX
     Dosage: STRENGTH: 1 G
     Route: 042
     Dates: start: 20160627, end: 20160629
  4. PACLITAXEL ACCORD [Suspect]
     Active Substance: PACLITAXEL
     Indication: CERVIX CARCINOMA
     Dosage: STRENGTH: 6 MG/ML
     Route: 042
     Dates: start: 20160627, end: 20160627
  5. CISPLATIN SANDOZ [Interacting]
     Active Substance: CISPLATIN
     Indication: SQUAMOUS CELL CARCINOMA OF THE CERVIX
     Dosage: STRENGTH: 1 MG/ML
     Route: 042
     Dates: start: 20160628, end: 20160628
  6. SOLDESAM [Concomitant]
     Active Substance: DEXAMETHASONE
     Route: 048

REACTIONS (3)
  - Off label use [Unknown]
  - Pancytopenia [Recovered/Resolved]
  - Drug interaction [Unknown]

NARRATIVE: CASE EVENT DATE: 20160705
